FAERS Safety Report 10032583 (Version 2)
Quarter: 2014Q1

REPORT INFORMATION
  Report Type: Spontaneous
  Country: US (occurrence: US)
  Receive Date: 20140324
  Receipt Date: 20140324
  Transmission Date: 20141002
  Serious: Yes (Hospitalization)
  Sender: FDA-Public Use
  Company Number: US-GLAXOSMITHKLINE-A0862790A

PATIENT
  Age: 51 Year
  Sex: Female

DRUGS (1)
  1. AVANDIA [Suspect]
     Indication: DIABETES MELLITUS
     Route: 048
     Dates: end: 2008

REACTIONS (5)
  - Basal ganglia infarction [Unknown]
  - Brain stem haemorrhage [Unknown]
  - Cerebrovascular accident [Unknown]
  - Pain in extremity [Unknown]
  - Gait disturbance [Unknown]
